FAERS Safety Report 6871673-9 (Version None)
Quarter: 2010Q3

REPORT INFORMATION
  Report Type: 
  Country: None (occurrence: None)
  Receive Date: 20100723
  Receipt Date: 20100715
  Transmission Date: 20110219
  Serious: Yes (Other)
  Sender: FDA-Public Use
  Company Number: GXKR2010AT07894

PATIENT
  Sex: Female

DRUGS (8)
  1. PREDNISOLONE (NGX) [Suspect]
     Indication: DIFFUSE LARGE B-CELL LYMPHOMA
     Dosage: 100 MG, ON DAY 1-5
     Route: 048
  2. MITOXANTRONE (NGX) [Suspect]
     Indication: DIFFUSE LARGE B-CELL LYMPHOMA
     Dosage: 8 MG ON DAY 2
     Route: 042
  3. VINCRISTINE (NGX) [Suspect]
     Indication: DIFFUSE LARGE B-CELL LYMPHOMA
     Dosage: 1MG ON DAY 2
     Route: 042
  4. RITUXIMAB [Suspect]
     Indication: DIFFUSE LARGE B-CELL LYMPHOMA
     Dosage: 375 MG/M2, ON DAY 1
     Route: 042
  5. CYCLOPHOSPHAMIDE [Suspect]
     Indication: DIFFUSE LARGE B-CELL LYMPHOMA
     Dosage: 750 MG, TOTAL ON DAY 2
     Route: 042
  6. PARACETAMOL [Concomitant]
     Indication: PREMEDICATION
     Dosage: 1000 MG, UNK
     Route: 048
  7. ANTIHISTAMINES [Concomitant]
     Indication: PREMEDICATION
     Dosage: ON DAY 1
     Route: 042
  8. SEROTONIN ANTAGONISTS [Concomitant]

REACTIONS (1)
  - LEUKOPENIA [None]
